FAERS Safety Report 6900189-6 (Version None)
Quarter: 2010Q3

REPORT INFORMATION
  Report Type: 
  Country: None (occurrence: None)
  Receive Date: 20100803
  Receipt Date: 20100721
  Transmission Date: 20110219
  Serious: Yes (Hospitalization)
  Sender: FDA-Public Use
  Company Number: US-ELI_LILLY_AND_COMPANY-US201007005621

PATIENT
  Age: 65 Year

DRUGS (13)
  1. CYMBALTA [Suspect]
     Indication: DEPRESSION
     Dosage: 30 MG, DAILY (1/D)
  2. SIMVASTIN [Concomitant]
     Dosage: 40 MG, DAILY (1/D)
  3. LANTUS [Concomitant]
     Dosage: 35 U, 2/D
  4. PACERONE [Concomitant]
     Dosage: 200 MG, DAILY (1/D)
  5. TERAZOSIN HCL [Concomitant]
     Dosage: 30 MG, EACH EVENING
  6. KLOR-CON [Concomitant]
     Dosage: 20 MEQ, DAILY (1/D)
  7. REGLAN [Concomitant]
     Dosage: 10 MG, 2/D
  8. TRENTAL [Concomitant]
     Dosage: 400 MG, 3/D
  9. RENVELA [Concomitant]
     Dosage: 800 MG, UNK
  10. VITAMIN D [Concomitant]
  11. ASCORBIC ACID [Concomitant]
  12. MSM [Concomitant]
  13. ASPIRIN [Concomitant]
     Dosage: 325 MG, DAILY (1/D)

REACTIONS (1)
  - PARATHYROID TUMOUR BENIGN [None]
